FAERS Safety Report 22215322 (Version 1)
Quarter: 2023Q2

REPORT INFORMATION
  Report Type: Spontaneous
  Country: US (occurrence: US)
  Receive Date: 20230415
  Receipt Date: 20230415
  Transmission Date: 20230722
  Serious: No
  Sender: FDA-Public Use
  Company Number: US-JNJFOC-20190731709

PATIENT
  Age: 65 Year
  Sex: Female

DRUGS (1)
  1. IMODIUM MULTI-SYMPTOM RELIEF [Suspect]
     Active Substance: DIMETHICONE\LOPERAMIDE HYDROCHLORIDE
     Indication: Diarrhoea
     Dosage: 1 CAPLET 2X PER DAY SINCE 2013
     Route: 048
     Dates: start: 2013, end: 20190718

REACTIONS (2)
  - Incorrect product administration duration [Unknown]
  - Product administration error [Unknown]
